FAERS Safety Report 15100750 (Version 1)
Quarter: 2018Q3

REPORT INFORMATION
  Report Type: Spontaneous
  Country: US (occurrence: US)
  Receive Date: 20180703
  Receipt Date: 20180703
  Transmission Date: 20181010
  Serious: Yes (Other)
  Sender: FDA-Public Use
  Company Number: US-ZYDUS-020725

PATIENT
  Age: 26 Year
  Sex: Male

DRUGS (14)
  1. CYCLOPHOSPHAMIDE. [Concomitant]
     Active Substance: CYCLOPHOSPHAMIDE
     Indication: CHEMOTHERAPY
     Route: 065
  2. CYTARABINE/CYTARABINE HYDROCHLORIDE/CYTARABINE OCFOSFATE [Concomitant]
     Indication: CHEMOTHERAPY
     Route: 065
  3. IMATINIB/IMATINIB MESILATE [Concomitant]
     Indication: CHEMOTHERAPY
     Route: 065
  4. NILOTINIB [Suspect]
     Active Substance: NILOTINIB
     Indication: CHEMOTHERAPY
     Route: 065
  5. VORICONAZOLE. [Suspect]
     Active Substance: VORICONAZOLE
     Indication: ANTIFUNGAL PROPHYLAXIS
     Route: 048
  6. DOXORUBICIN [Concomitant]
     Active Substance: DOXORUBICIN
     Indication: CHEMOTHERAPY
     Route: 065
  7. NILOTINIB [Concomitant]
     Active Substance: NILOTINIB
     Indication: CHEMOTHERAPY
     Dosage: NILOTINIB MAINTENANCE
     Route: 065
  8. CLOFARABINE. [Concomitant]
     Active Substance: CLOFARABINE
     Indication: CHEMOTHERAPY
     Route: 065
  9. VINCRISTINE/VINCRISTINE SULFATE [Concomitant]
     Indication: CHEMOTHERAPY
     Route: 065
  10. BLINATUMOMAB [Concomitant]
     Active Substance: BLINATUMOMAB
     Indication: PRODUCT USED FOR UNKNOWN INDICATION
     Route: 065
  11. DEXAMETHASONE. [Concomitant]
     Active Substance: DEXAMETHASONE
     Indication: CHEMOTHERAPY
     Route: 065
  12. MITOXANTRONE [Concomitant]
     Active Substance: MITOXANTRONE HYDROCHLORIDE
     Indication: CHEMOTHERAPY
     Route: 065
  13. ETOPOSIDE. [Concomitant]
     Active Substance: ETOPOSIDE
     Indication: CHEMOTHERAPY
     Route: 065
  14. DASATINIB. [Interacting]
     Active Substance: DASATINIB
     Indication: CHEMOTHERAPY
     Route: 065

REACTIONS (2)
  - Drug interaction [Unknown]
  - Drug level increased [Unknown]
